FAERS Safety Report 4355845-3 (Version None)
Quarter: 2004Q2

REPORT INFORMATION
  Report Type: 
  Country: None (occurrence: None)
  Receive Date: 20040505
  Receipt Date: 20040419
  Transmission Date: 20050107
  Serious: Yes (Death)
  Sender: FDA-Public Use
  Company Number: DSA_24285_2004

PATIENT
  Age: 83 Year
  Sex: Female
  Weight: 34 kg

DRUGS (4)
  1. ATIVAN [Suspect]
     Indication: ANXIETY
     Dosage: 0.5 MG Q4HR NC
  2. ROXANOL [Suspect]
     Indication: AGITATION
     Dosage: 40 MG ONCE SL
     Route: 060
     Dates: start: 20030705, end: 20030705
  3. ROXANOL [Suspect]
     Indication: ANXIETY
     Dosage: 40 MG ONCE SL
     Route: 060
     Dates: start: 20030705, end: 20030705
  4. DETROL [Concomitant]

REACTIONS (6)
  - AGITATION [None]
  - ANXIETY [None]
  - CHOKING [None]
  - HEART RATE INCREASED [None]
  - MEDICATION ERROR [None]
  - RESPIRATORY ARREST [None]
